FAERS Safety Report 4731924-3 (Version None)
Quarter: 2005Q3

REPORT INFORMATION
  Report Type: 
  Country: None (occurrence: None)
  Receive Date: 20050725
  Receipt Date: 20041025
  Transmission Date: 20060218
  Serious: Yes (Disabling)
  Sender: FDA-Public Use
  Company Number: WAES 0410USA03733

PATIENT
  Age: 62 Year
  Sex: Male

DRUGS (1)
  1. VIOXX [Suspect]
     Indication: ARTHRITIS
     Dosage: UNK/UNK/PO
     Route: 048
     Dates: start: 20030601, end: 20041010

REACTIONS (2)
  - ASTHENIA [None]
  - HEART RATE IRREGULAR [None]
